FAERS Safety Report 8075956-9 (Version None)
Quarter: 2012Q1

REPORT INFORMATION
  Report Type: 
  Country: None (occurrence: None)
  Receive Date: 20120127
  Receipt Date: 20110304
  Transmission Date: 20120608
  Serious: No
  Sender: FDA-Public Use
  Company Number: US-GLAXOSMITHKLINE-A0766606A

PATIENT
  Age: 45 Year
  Sex: Male

DRUGS (8)
  1. PAXIL [Suspect]
     Indication: PRODUCT USED FOR UNKNOWN INDICATION
     Route: 065
  2. LISINOPRIL [Concomitant]
  3. RELPAX [Concomitant]
  4. PAXIL CR [Concomitant]
  5. BUPROPION HYDROCHLORIDE [Suspect]
     Indication: DEPRESSION
     Dosage: 150MG TWICE PER DAY
     Route: 048
  6. ACIPHEX [Concomitant]
  7. CLONAZEPAM [Concomitant]
  8. NIASPAN [Concomitant]

REACTIONS (3)
  - HEADACHE [None]
  - PAIN [None]
  - DRUG INEFFECTIVE [None]
